FAERS Safety Report 9932031 (Version 1)
Quarter: 2014Q1

REPORT INFORMATION
  Report Type: Spontaneous
  Country: US (occurrence: US)
  Receive Date: 20140228
  Receipt Date: 20140228
  Transmission Date: 20141002
  Serious: No
  Sender: FDA-Public Use
  Company Number: US-ABBVIE-13P-163-1143378-00

PATIENT
  Age: 47 Year
  Sex: Male

DRUGS (5)
  1. ANDROGEL [Suspect]
     Indication: BLOOD TESTOSTERONE DECREASED
     Dosage: FIVE GRAMS DAILY
     Route: 061
     Dates: start: 2011
  2. ANDROGEL [Suspect]
     Indication: BLOOD TESTOSTERONE DECREASED
     Dosage: 40.5 MILLIGRAMS DAILY
     Route: 061
     Dates: start: 201305
  3. AMBIEN [Concomitant]
     Indication: INSOMNIA
  4. CELEBREX [Concomitant]
     Indication: ARTHRITIS
  5. MULTIPLE VITAMIN [Concomitant]
     Indication: VITAMIN SUPPLEMENTATION

REACTIONS (1)
  - Acne [Not Recovered/Not Resolved]
